FAERS Safety Report 6656253-2 (Version None)
Quarter: 2010Q1

REPORT INFORMATION
  Report Type: 
  Country: None (occurrence: None)
  Receive Date: 20100329
  Receipt Date: 20100324
  Transmission Date: 20100710
  Serious: Yes (Other)
  Sender: FDA-Public Use
  Company Number: JP-ELI_LILLY_AND_COMPANY-JP201002001321

PATIENT
  Age: 66 Year
  Sex: Female
  Weight: 49 kg

DRUGS (2)
  1. GEMZAR [Suspect]
     Indication: BLADDER SQUAMOUS CELL CARCINOMA STAGE III
     Dosage: 1000 MG/M2, OTHER
     Route: 042
     Dates: start: 20080101, end: 20080101
  2. NEDAPLATIN [Concomitant]
     Indication: BLADDER SQUAMOUS CELL CARCINOMA STAGE III
     Dosage: 80 MG/M2, OTHER
     Route: 042
     Dates: start: 20080101, end: 20080101

REACTIONS (2)
  - GENERAL PHYSICAL HEALTH DETERIORATION [None]
  - NEUTROPHIL COUNT DECREASED [None]
